FAERS Safety Report 5857399-9 (Version None)
Quarter: 2008Q3

REPORT INFORMATION
  Report Type: 
  Country: None (occurrence: None)
  Receive Date: 20080826
  Receipt Date: 20080820
  Transmission Date: 20090109
  Serious: Yes (Hospitalization)
  Sender: FDA-Public Use
  Company Number: US-BRISTOL-MYERS SQUIBB COMPANY-14297469

PATIENT
  Age: 56 Year
  Sex: Male

DRUGS (5)
  1. BMS690514 [Suspect]
     Indication: NEOPLASM
     Dosage: START DATE: 28JUL08.
     Route: 048
     Dates: start: 20080808, end: 20080808
  2. LEUCOVORIN CALCIUM [Suspect]
     Indication: NEOPLASM
     Dosage: START DATE: 03JUL08
     Route: 042
     Dates: start: 20080730, end: 20080730
  3. FLUOROURACIL [Suspect]
     Indication: NEOPLASM
     Dosage: START DATE: 03JUL08
     Route: 042
     Dates: start: 20080730, end: 20080730
  4. OXALIPLATIN [Suspect]
     Indication: NEOPLASM
     Route: 042
     Dates: start: 20080730, end: 20080730
  5. HYDRATION [Concomitant]
     Dosage: IVF HYDRATION.
     Route: 042
     Dates: start: 20080811, end: 20080812

REACTIONS (1)
  - BLOOD CREATININE INCREASED [None]
